FAERS Safety Report 8165751 (Version 2)
Quarter: 2013Q1

REPORT INFORMATION
  Report Type: Spontaneous
  Country: US (occurrence: US)
  Receive Date: 20111003
  Receipt Date: 20130130
  Transmission Date: 20140127
  Serious: No
  Sender: FDA-Public Use
  Company Number: US-ELI_LILLY_AND_COMPANY-US201109006350

PATIENT
  Sex: Female

DRUGS (1)
  1. FORTEO [Suspect]
     Dosage: UNK UNK, QD
     Route: 065
     Dates: start: 20110420

REACTIONS (8)
  - Arthritis [Unknown]
  - Varicose vein [Unknown]
  - Bone fragmentation [Unknown]
  - Pain [Unknown]
  - Burning sensation [Unknown]
  - Chondropathy [Unknown]
  - Mass [Unknown]
  - Pain in extremity [Unknown]
